FAERS Safety Report 23463102 (Version 4)
Quarter: 2024Q1

REPORT INFORMATION
  Report Type: Spontaneous
  Country: US (occurrence: US)
  Receive Date: 20240131
  Receipt Date: 20240312
  Transmission Date: 20240410
  Serious: Yes (Other)
  Sender: FDA-Public Use
  Company Number: US-PFIZER INC-PV202400013877

PATIENT
  Age: 80 Year
  Sex: Female

DRUGS (3)
  1. IBRANCE [Suspect]
     Active Substance: PALBOCICLIB
     Dosage: 100 MG, CYCLIC (FIRST CYCLE)
  2. IBRANCE [Suspect]
     Active Substance: PALBOCICLIB
     Dosage: 100 MG, CYCLIC (SECOND CYCLE)
  3. ZOMETA [Suspect]
     Active Substance: ZOLEDRONIC ACID
     Dosage: INFUSION

REACTIONS (10)
  - White blood cell count decreased [Recovered/Resolved]
  - Candida infection [Unknown]
  - Dry mouth [Unknown]
  - Paraesthesia oral [Unknown]
  - Arthralgia [Unknown]
  - Sinus disorder [Unknown]
  - Dry eye [Unknown]
  - Ocular hyperaemia [Unknown]
  - Vision blurred [Unknown]
  - Eye movement disorder [Unknown]
